FAERS Safety Report 6140027 (Version 4)
Quarter: 2014Q4

REPORT INFORMATION
  Report Type: Report from Study
  Country: US (occurrence: US)
  Receive Date: 20060919
  Receipt Date: 20141208
  Transmission Date: 20150529
  Serious: Yes (Hospitalization)
  Sender: FDA-Public Use
  Company Number: 2006BI012776

PATIENT
  Age: 26 Year
  Sex: Female
  Weight: 78 kg

DRUGS (4)
  1. AVONEX [Suspect]
     Active Substance: INTERFERON BETA-1A
     Indication: MULTIPLE SCLEROSIS
     Route: 030
     Dates: start: 20011031, end: 200308
  2. AVONEX [Suspect]
     Active Substance: INTERFERON BETA-1A
     Indication: MULTIPLE SCLEROSIS
     Route: 030
     Dates: start: 200308, end: 20070908
  3. AVONEX [Suspect]
     Active Substance: INTERFERON BETA-1A
     Indication: MULTIPLE SCLEROSIS
     Route: 030
     Dates: start: 20090929, end: 20130605
  4. XANAX [Concomitant]
     Active Substance: ALPRAZOLAM
     Indication: PANIC ATTACK

REACTIONS (13)
  - Obesity [Recovered/Resolved]
  - Feeling hot [Recovered/Resolved]
  - Myositis [Recovered/Resolved]
  - Sensory disturbance [Not Recovered/Not Resolved]
  - Emotional distress [Not Recovered/Not Resolved]
  - Paraesthesia [Not Recovered/Not Resolved]
  - Hypoaesthesia [Not Recovered/Not Resolved]
  - Influenza like illness [Recovered/Resolved]
  - Fatigue [Not Recovered/Not Resolved]
  - Pyrexia [Recovered/Resolved]
  - Feeling cold [Recovered/Resolved]
  - Tremor [Recovered/Resolved]
  - Headache [Recovered/Resolved]

NARRATIVE: CASE EVENT DATE: 20011031
